FAERS Safety Report 4937368-3 (Version None)
Quarter: 2006Q1

REPORT INFORMATION
  Report Type: 
  Country: None (occurrence: None)
  Receive Date: 20060309
  Receipt Date: 20050601
  Transmission Date: 20060701
  Serious: Yes (Other)
  Sender: FDA-Public Use
  Company Number: PHFR2005GB02024

PATIENT
  Age: 38 Year
  Sex: Female
  Weight: 63.492 kg

DRUGS (2)
  1. RITALIN [Suspect]
     Dosage: 36 MG, ONCE/SINGLE
     Route: 048
     Dates: start: 20050601
  2. THYROXINE [Concomitant]
     Dosage: 50UG PER DAY
     Route: 048

REACTIONS (4)
  - ACCIDENTAL EXPOSURE [None]
  - CAESAREAN SECTION [None]
  - DRUG EXPOSURE DURING PREGNANCY [None]
  - FOETAL GROWTH RETARDATION [None]
